FAERS Safety Report 18647867 (Version 1)
Quarter: 2020Q4

REPORT INFORMATION
  Report Type: Spontaneous
  Country: CN (occurrence: CN)
  Receive Date: 20201222
  Receipt Date: 20201222
  Transmission Date: 20210114
  Serious: Yes (Other)
  Sender: FDA-Public Use
  Company Number: CN-LUPIN PHARMACEUTICALS INC.-2020-10705

PATIENT
  Age: 34 Year
  Sex: Female

DRUGS (5)
  1. ARBIDOL [Suspect]
     Active Substance: UMIFENOVIR
     Dosage: 200 MILLIGRAM, TID
     Route: 048
     Dates: start: 20200130, end: 20200203
  2. LEVOFLOXACIN. [Suspect]
     Active Substance: LEVOFLOXACIN
     Indication: COVID-19
     Dosage: UNK
     Route: 065
     Dates: start: 20200120, end: 20200122
  3. OSELTAMIVIR [Suspect]
     Active Substance: OSELTAMIVIR
     Indication: COVID-19
     Dosage: 75 MILLIGRAM, BID
     Route: 048
     Dates: start: 20200119, end: 20200122
  4. ARBIDOL [Suspect]
     Active Substance: UMIFENOVIR
     Indication: COVID-19
     Dosage: 200 MILLIGRAM, TID
     Route: 048
     Dates: start: 20200123, end: 20200128
  5. MOXIFLOXACIN HYDROCHLORIDE. [Suspect]
     Active Substance: MOXIFLOXACIN HYDROCHLORIDE
     Indication: COVID-19
     Dosage: 0.4 GRAM, QD
     Route: 048
     Dates: start: 20200119, end: 20200120

REACTIONS (3)
  - Vomiting [Recovered/Resolved]
  - Nausea [Recovered/Resolved]
  - Off label use [Unknown]

NARRATIVE: CASE EVENT DATE: 202001
